FAERS Safety Report 7459547-6 (Version None)
Quarter: 2011Q2

REPORT INFORMATION
  Report Type: 
  Country: None (occurrence: None)
  Receive Date: 20110426
  Receipt Date: 20110408
  Transmission Date: 20111010
  Serious: Yes (Life-Threatening, Hospitalization)
  Sender: FDA-Public Use
  Company Number: 2011-00427

PATIENT
  Age: 6 Year
  Sex: Male
  Weight: 19.7 kg

DRUGS (5)
  1. MACROGO1+3350 POLYETHYLENE GLYCOL 3350+POTASSIUM CL+SODIUM BICARBONATE [Concomitant]
  2. SODIUM PEREDETATE + SODIUM IRONEDETATE [Concomitant]
  3. CEFOTAXIME [Suspect]
     Indication: ENDOCARDITIS
     Dosage: 1 GM (1 GM,UNK), INTRAVENOUS
     Route: 042
     Dates: start: 20110216, end: 20110314
  4. GENTAMICIN (UNKNOWN) [Concomitant]
  5. CIPROFLOXACIN [Concomitant]

REACTIONS (1)
  - BONE MARROW FAILURE [None]
